FAERS Safety Report 8268053-0 (Version None)
Quarter: 2012Q2

REPORT INFORMATION
  Report Type: 
  Country: None (occurrence: None)
  Receive Date: 20120404
  Receipt Date: 20120320
  Transmission Date: 20120825
  Serious: Yes (Other)
  Sender: FDA-Public Use
  Company Number: 2012VX001361

PATIENT
  Age: 60 Year
  Sex: Male

DRUGS (7)
  1. THERAPEUTIC RADIOPHARMACEUTICALS [Concomitant]
  2. OXALIPLATIN [Suspect]
     Indication: RECTAL CANCER
     Dosage: 85 MG/M**2; 68 MG/M**2;
  3. FLUOROURACIL [Suspect]
     Indication: RECTAL CANCER
     Dosage: SEE IMAGE
     Route: 040
  4. BEVACIZUMAB [Concomitant]
  5. LEUCOVORIN CALCIUM [Suspect]
     Indication: RECTAL CANCER
     Dosage: 100 MG/M**2;  200 MG/M**2;
  6. ANTIHYPERTENSIVES [Concomitant]
  7. DOXIFLURIDINE [Concomitant]

REACTIONS (2)
  - HEPATIC ENZYME INCREASED [None]
  - HYPOAESTHESIA [None]
